FAERS Safety Report 8173109-7 (Version None)
Quarter: 2012Q1

REPORT INFORMATION
  Report Type: 
  Country: None (occurrence: None)
  Receive Date: 20120229
  Receipt Date: 20120218
  Transmission Date: 20120608
  Serious: Yes (Hospitalization)
  Sender: FDA-Public Use
  Company Number: CA-JNJFOC-20120210241

PATIENT
  Sex: Male
  Weight: 68 kg

DRUGS (3)
  1. OXYCONTIN [Concomitant]
     Indication: PAIN
     Route: 065
  2. TORADOL [Concomitant]
     Indication: PAIN
     Route: 065
  3. REMICADE [Suspect]
     Indication: CROHN'S DISEASE
     Route: 042
     Dates: start: 20070101

REACTIONS (1)
  - NEPHROLITHIASIS [None]
